FAERS Safety Report 5942407-7 (Version None)
Quarter: 2008Q4

REPORT INFORMATION
  Report Type: 
  Country: None (occurrence: None)
  Receive Date: 20081105
  Receipt Date: 20081007
  Transmission Date: 20090506
  Serious: Yes (Other)
  Sender: FDA-Public Use
  Company Number: FR-PFIZER INC-2008089791

PATIENT
  Age: 48 Year
  Sex: Male

DRUGS (2)
  1. TAHOR [Suspect]
     Indication: MYOCARDIAL INFARCTION
     Dates: start: 20070101
  2. EZETIMIBE [Concomitant]

REACTIONS (4)
  - AMYOTROPHY [None]
  - BLOOD CREATINE PHOSPHOKINASE INCREASED [None]
  - MUSCLE SPASMS [None]
  - MYALGIA [None]
